FAERS Safety Report 15227518 (Version 1)
Quarter: 2018Q4

REPORT INFORMATION
  Report Type: Spontaneous
  Country: IT (occurrence: IT)
  Receive Date: 20180801
  Receipt Date: 20180801
  Transmission Date: 20190204
  Serious: Yes (Other)
  Sender: FDA-Public Use
  Company Number: IT-PFIZER INC-2018306067

PATIENT
  Age: 60 Year
  Sex: Female

DRUGS (1)
  1. TRIATEC (RAMIPRIL) [Suspect]
     Active Substance: RAMIPRIL
     Indication: HYPERTENSION
     Dosage: 5 MG, DAILY

REACTIONS (2)
  - Asthmatic crisis [Recovered/Resolved]
  - Laryngospasm [Recovered/Resolved]
